FAERS Safety Report 10506044 (Version 1)
Quarter: 2014Q4

REPORT INFORMATION
  Report Type: Spontaneous
  Country: CH (occurrence: CH)
  Receive Date: 20141008
  Receipt Date: 20141008
  Transmission Date: 20150528
  Serious: Yes (Other)
  Sender: FDA-Public Use
  Company Number: CH-BAUSCH-SYM-2013-12719

PATIENT
  Age: 83 Year
  Sex: Female

DRUGS (3)
  1. METRONIDAZOLE. [Suspect]
     Active Substance: METRONIDAZOLE
     Route: 048
  2. METRONIDAZOLE. [Suspect]
     Active Substance: METRONIDAZOLE
     Indication: LIVER ABSCESS
     Route: 042
  3. CEFTRIAXONE. [Concomitant]
     Active Substance: CEFTRIAXONE
     Indication: PRODUCT USED FOR UNKNOWN INDICATION

REACTIONS (7)
  - Agitation [Recovering/Resolving]
  - Quadriparesis [Recovering/Resolving]
  - Fear of death [Recovering/Resolving]
  - Ataxia [Recovering/Resolving]
  - Anxiety [Recovering/Resolving]
  - Dysaesthesia [Recovering/Resolving]
  - Paraesthesia [Recovering/Resolving]
